FAERS Safety Report 10564750 (Version 1)
Quarter: 2014Q4

REPORT INFORMATION
  Report Type: Spontaneous
  Country: GB (occurrence: GB)
  Receive Date: 20141105
  Receipt Date: 20141105
  Transmission Date: 20150529
  Serious: Yes (Hospitalization)
  Sender: FDA-Public Use
  Company Number: GB-AUROBINDO-AUR-APL-2014-11436

PATIENT
  Age: 38 Year
  Sex: Male

DRUGS (1)
  1. TOPIRAMATE 25MG [Suspect]
     Active Substance: TOPIRAMATE
     Indication: MIGRAINE
     Dosage: 25 MG, TWO TIMES A DAY
     Route: 048

REACTIONS (1)
  - Nephrolithiasis [Recovering/Resolving]
